FAERS Safety Report 20721740 (Version 2)
Quarter: 2022Q2

REPORT INFORMATION
  Report Type: Other
  Country: US (occurrence: None)
  Receive Date: 20220418
  Receipt Date: 20220503
  Transmission Date: 20220721
  Serious: Yes (Hospitalization)
  Sender: FDA-Public Use
  Company Number: US-ROCHE-3068805

PATIENT
  Sex: Male
  Weight: 91.708 kg

DRUGS (7)
  1. OCREVUS [Suspect]
     Active Substance: OCRELIZUMAB
     Indication: Secondary progressive multiple sclerosis
     Dosage: 300 MG AT DAY 0 AND 15, THEN 600 MG EVERY 6 MONTH
     Route: 042
     Dates: start: 2016, end: 20220330
  2. OCREVUS [Suspect]
     Active Substance: OCRELIZUMAB
     Route: 042
     Dates: start: 2018
  3. OCREVUS [Suspect]
     Active Substance: OCRELIZUMAB
     Route: 042
     Dates: start: 201711, end: 20220330
  4. KLONOPIN [Concomitant]
     Active Substance: CLONAZEPAM
  5. UNSPECIFIED INGREDIENT [Concomitant]
     Active Substance: UNSPECIFIED INGREDIENT
  6. BACLOFEN [Concomitant]
     Active Substance: BACLOFEN
  7. CITIRIZINE [Concomitant]

REACTIONS (4)
  - Facial paralysis [Unknown]
  - Hemiplegia [Recovered/Resolved]
  - Hypertension [Recovered/Resolved]
  - Mobility decreased [Not Recovered/Not Resolved]

NARRATIVE: CASE EVENT DATE: 20160101
